FAERS Safety Report 4564054-4 (Version None)
Quarter: 2005Q1

REPORT INFORMATION
  Report Type: 
  Country: None (occurrence: None)
  Receive Date: 20050128
  Receipt Date: 20050114
  Transmission Date: 20050727
  Serious: Yes (Other)
  Sender: FDA-Public Use
  Company Number: NL-MERCK-0501USA03650

PATIENT
  Age: 12 Year
  Sex: Female

DRUGS (7)
  1. ELSPAR [Suspect]
     Indication: ACUTE LYMPHOCYTIC LEUKAEMIA
     Route: 030
  2. DEXAMETHASONE [Concomitant]
     Route: 065
  3. METHOTREXATE [Concomitant]
     Route: 065
  4. DAUNORUBICIN [Concomitant]
     Route: 065
  5. MERCAPTOPURINE [Concomitant]
     Route: 065
  6. PREDNISONE [Concomitant]
     Route: 065
  7. VINCRISTINE SULFATE [Concomitant]
     Route: 065

REACTIONS (3)
  - CEREBRAL INFARCTION [None]
  - EXPRESSIVE LANGUAGE DISORDER [None]
  - PARTIAL SEIZURES [None]
